FAERS Safety Report 7077343-9 (Version None)
Quarter: 2010Q4

REPORT INFORMATION
  Report Type: 
  Country: None (occurrence: None)
  Receive Date: 20101029
  Receipt Date: 20101029
  Transmission Date: 20110411
  Serious: Yes (Life-Threatening, Hospitalization)
  Sender: FDA-Public Use
  Company Number: None

PATIENT
  Age: 54 Year
  Sex: Female
  Weight: 60 kg

DRUGS (3)
  1. INVEGA SUSTENNA [Suspect]
     Indication: MENTAL DISORDER
     Dosage: 156 MILLIGRAMS MONTHLY IM
     Route: 030
     Dates: start: 20100909, end: 20101013
  2. HALOPERIDOL [Suspect]
     Indication: AGITATION
     Dosage: 11 MILLIGRAMS WITHIN 24 HOURS IM
     Route: 030
     Dates: start: 20101014, end: 20101014
  3. HALOPERIDOL [Suspect]
     Indication: CONFUSIONAL STATE
     Dosage: 11 MILLIGRAMS WITHIN 24 HOURS IM
     Route: 030
     Dates: start: 20101014, end: 20101014

REACTIONS (3)
  - GRAND MAL CONVULSION [None]
  - NEUROLEPTIC MALIGNANT SYNDROME [None]
  - RESPIRATORY FAILURE [None]
